FAERS Safety Report 15545777 (Version 1)
Quarter: 2018Q4

REPORT INFORMATION
  Report Type: Other
  Country: IT (occurrence: IT)
  Receive Date: 20181024
  Receipt Date: 20181024
  Transmission Date: 20190205
  Serious: Yes (Hospitalization)
  Sender: FDA-Public Use
  Company Number: IT-APOTEX-2018AP023194

PATIENT
  Age: 7 Year
  Sex: Male

DRUGS (5)
  1. CLARITHROMYCIN. [Suspect]
     Active Substance: CLARITHROMYCIN
     Indication: EAR INFECTION
     Route: 065
  2. PARACETAMOL [Suspect]
     Active Substance: ACETAMINOPHEN
     Indication: EAR INFECTION
     Route: 065
  3. AMOXICILLIN AND CLAVULANATE POTASSIUM [Suspect]
     Active Substance: AMOXICILLIN\CLAVULANATE POTASSIUM
     Indication: EAR INFECTION
     Route: 065
  4. MORNIFLUMATE [Suspect]
     Active Substance: MORNIFLUMATE
     Indication: EAR INFECTION
     Route: 065
  5. PHENAZONE W/PROCAINE HYDROCHLORIDE [Suspect]
     Active Substance: ANTIPYRINE\PROCAINE HYDROCHLORIDE
     Indication: EAR INFECTION
     Route: 065

REACTIONS (1)
  - Vasculitis [Unknown]
